FAERS Safety Report 23124523 (Version 6)
Quarter: 2024Q2

REPORT INFORMATION
  Report Type: Spontaneous
  Country: JP (occurrence: JP)
  Receive Date: 20231030
  Receipt Date: 20240612
  Transmission Date: 20240717
  Serious: Yes (Hospitalization)
  Sender: FDA-Public Use
  Company Number: JP-ORGANON-O2309JPN003062

PATIENT
  Age: 76 Year
  Sex: Male

DRUGS (14)
  1. BONALON [Suspect]
     Active Substance: ALENDRONATE SODIUM
     Indication: Osteoporosis
     Dosage: 35 MILLIGRAM PER WEEK
     Route: 048
     Dates: start: 20230901, end: 20230915
  2. ABRAXANE [Suspect]
     Active Substance: PACLITAXEL
     Indication: Lung neoplasm malignant
     Dosage: UNK
     Route: 041
  3. GEMZAR [Suspect]
     Active Substance: GEMCITABINE HYDROCHLORIDE
     Indication: Lung neoplasm malignant
     Dosage: 1500 MILLIGRAM, QD
     Route: 041
     Dates: start: 20230915, end: 20230915
  4. CARBOPLATIN [Suspect]
     Active Substance: CARBOPLATIN
     Indication: Lung neoplasm malignant
     Dosage: 250 MILLIGRAM, QD
     Route: 041
     Dates: start: 20230224, end: 20230915
  5. AZOSEMIDE [Concomitant]
     Active Substance: AZOSEMIDE
     Indication: Oedema peripheral
     Dosage: 30 MILLIGRAM, PER DAY (AFTER BREAKFAST)
     Route: 048
     Dates: start: 20230701
  6. VFEND [Concomitant]
     Active Substance: VORICONAZOLE
     Indication: Bronchopulmonary aspergillosis
     Dosage: 400.0 MILLIGRAM, QD (TWO HOURS AFTER BREAKFAST)
     Route: 048
     Dates: start: 20230901
  7. LAFUTIDINE [Concomitant]
     Active Substance: LAFUTIDINE
     Indication: Gastric ulcer
     Dosage: 10 MG/DAY AFTER SUPPER
     Route: 048
     Dates: start: 20230901
  8. SULFAMETHOXAZOLE\TRIMETHOPRIM [Concomitant]
     Active Substance: SULFAMETHOXAZOLE\TRIMETHOPRIM
     Dosage: 1 DF/DAY, AFTER BREAKFAST, SATURDAYS AND SUNDAYS
     Route: 048
     Dates: start: 20230901
  9. PREDNISOLONE [Concomitant]
     Active Substance: PREDNISOLONE
     Indication: Inflammation
     Dosage: 3 MG/DAY, AFTER BREAKFAST
     Route: 048
     Dates: start: 20230901
  10. URSO [Concomitant]
     Active Substance: URSODIOL
     Indication: Hepatic function abnormal
     Dosage: 900 MG/DAY, AFTER EACH MEAL
     Route: 048
     Dates: start: 20230901
  11. LOXOPROFEN SODIUM DIHYDRATE [Concomitant]
     Active Substance: LOXOPROFEN SODIUM DIHYDRATE
     Dosage: 240 MG/DAY, AFTER BREAKFAST AND SUPPER
     Route: 048
  12. TRICHLORMETHIAZIDE [Concomitant]
     Active Substance: TRICHLORMETHIAZIDE
     Indication: Oedema peripheral
     Dosage: 0.5 MG/DAY, AFTER BREAKFAST
     Route: 048
  13. MAGNESIUM OXIDE [Concomitant]
     Active Substance: MAGNESIUM OXIDE
     Dosage: 5940 MG/DAY, AFTER EACH MEAL
     Route: 048
  14. SENNA [Concomitant]
     Active Substance: SENNA LEAF\SENNOSIDES\SENNOSIDES A AND B
     Indication: Constipation
     Dosage: 160 MG PER DOSE, AS NEEDED
     Route: 048

REACTIONS (6)
  - Tongue erosion [Recovered/Resolved]
  - Lip erosion [Recovered/Resolved]
  - Stomatitis [Recovered/Resolved]
  - Glossitis [Unknown]
  - Respiratory disorder [Unknown]
  - Treatment noncompliance [Unknown]

NARRATIVE: CASE EVENT DATE: 20230901
